FAERS Safety Report 8360532-0 (Version None)
Quarter: 2012Q2

REPORT INFORMATION
  Report Type: 
  Country: None (occurrence: None)
  Receive Date: 20120515
  Receipt Date: 20120503
  Transmission Date: 20120825
  Serious: Yes (Other)
  Sender: FDA-Public Use
  Company Number: FR-ELI_LILLY_AND_COMPANY-FR201205001043

PATIENT
  Sex: Female

DRUGS (7)
  1. OXYCONTIN [Concomitant]
     Dosage: 20 MG, UNK
  2. ATARAX [Concomitant]
     Dosage: 25 MG, TID
     Route: 048
  3. PRIMPERAN TAB [Concomitant]
     Route: 048
  4. PANTOPRAZOLE SODIUM [Concomitant]
     Dosage: 20 MG, UNK
     Route: 048
  5. AMLODIPINE BESYLATE [Concomitant]
     Dosage: 5 MG, UNK
     Route: 048
  6. DEXERYL [Concomitant]
     Dosage: UNK
     Dates: start: 20111101
  7. GEMZAR [Suspect]
     Dosage: UNK, UNKNOWN
     Route: 042
     Dates: start: 20111208, end: 20120327

REACTIONS (3)
  - PRURITUS [None]
  - PHOTOSENSITIVITY REACTION [None]
  - RASH ERYTHEMATOUS [None]
